FAERS Safety Report 6830018 (Version 4)
Quarter: 2016Q1

REPORT INFORMATION
  Report Type: Report from Study
  Country: NL (occurrence: NL)
  Receive Date: 20081202
  Receipt Date: 20160322
  Transmission Date: 20160526
  Serious: Yes (Hospitalization)
  Sender: FDA-Public Use
  Company Number: NL-ROCHE-562688

PATIENT
  Age: 72 Year
  Sex: Male
  Weight: 56.8 kg

DRUGS (13)
  1. CISPLATIN. [Suspect]
     Active Substance: CISPLATIN
     Indication: GASTRIC CANCER
     Dosage: ON DAY 1; LAST DOSE PRIOR TO SAE:20 APR 2008, ROUTE,FORM,DOSAGE PER PROTOCOL
     Route: 042
     Dates: start: 20080306, end: 20080428
  2. CAPECITABINE. [Suspect]
     Active Substance: CAPECITABINE
     Indication: GASTRIC CANCER
     Dosage: LAST DOSE PRIOR TO SAE 20/APR/2008, ROUT FORM AND DOSE AS PER PROTOCOL
     Route: 048
     Dates: start: 20080306, end: 20080428
  3. LOPERAMIDE [Concomitant]
     Active Substance: LOPERAMIDE
  4. AUGMENTIN [Concomitant]
     Active Substance: AMOXICILLIN\CLAVULANATE POTASSIUM
  5. OMEPRAZOLE. [Concomitant]
     Active Substance: OMEPRAZOLE
     Dosage: DOSE: 2 X 40 MG
     Route: 065
  6. CEFUROXIM [Concomitant]
     Active Substance: CEFUROXIME
  7. FRAXIPARINE [Concomitant]
     Active Substance: NADROPARIN CALCIUM
  8. NEXIUM [Concomitant]
     Active Substance: ESOMEPRAZOLE MAGNESIUM
     Route: 048
  9. POTASSIUM CHLORIDE SUPPLEMENT [Concomitant]
     Dosage: DRUG NAME: KCL SUPPLETIE
     Route: 065
  10. EPIRUBICIN [Suspect]
     Active Substance: EPIRUBICIN
     Indication: GASTRIC CANCER
     Dosage: ON DAY 1; LAST DOSE PRIOR TO SAE:20 APR 2008, ROUTE,FORM,DOSAGE PER PROTOCOL
     Route: 042
     Dates: start: 20080306, end: 20080428
  11. MOVICOLON [Concomitant]
     Active Substance: POLYETHYLENE GLYCOL 3350\POTASSIUM CHLORIDE\SODIUM BICARBONATE\SODIUM CHLORIDE
     Dosage: DOSE REPORTED AS : 1 SACHET /DAY
     Route: 048
  12. METOCLOPRAMIDE. [Concomitant]
     Active Substance: METOCLOPRAMIDE
     Route: 048
  13. FLAGYL [Concomitant]
     Active Substance: METRONIDAZOLE\METRONIDAZOLE HYDROCHLORIDE

REACTIONS (8)
  - Pneumonitis [Recovered/Resolved]
  - Abdominal pain [Recovered/Resolved]
  - Nausea [Recovered/Resolved]
  - Gastrointestinal motility disorder [Unknown]
  - Lymphorrhoea [Unknown]
  - Decreased appetite [Recovered/Resolved]
  - Vomiting [Recovered/Resolved]
  - Diarrhoea [Recovered/Resolved]

NARRATIVE: CASE EVENT DATE: 20080306
